FAERS Safety Report 7251829-6 (Version None)
Quarter: 2011Q1

REPORT INFORMATION
  Report Type: 
  Country: None (occurrence: None)
  Receive Date: 20110128
  Receipt Date: 20100108
  Transmission Date: 20110831
  Serious: Yes (Other)
  Sender: FDA-Public Use
  Company Number: US-ABBOTT-09P-163-0609070-00

PATIENT
  Sex: Female
  Weight: 47.67 kg

DRUGS (9)
  1. CRESTOR [Concomitant]
     Indication: BLOOD CHOLESTEROL INCREASED
  2. ASPIRIN [Concomitant]
     Indication: CORONARY ARTERY BYPASS
  3. LANOXIN [Concomitant]
     Indication: CORONARY ARTERY BYPASS
  4. ARAVA [Concomitant]
     Indication: RHEUMATOID ARTHRITIS
  5. METROPOLOL SR [Concomitant]
     Indication: HYPERTENSION
  6. ZETIA [Concomitant]
     Indication: BLOOD CHOLESTEROL INCREASED
  7. MULTIVITAMIN [Concomitant]
     Indication: VITAMIN SUPPLEMENTATION
  8. HUMIRA [Suspect]
     Indication: RHEUMATOID ARTHRITIS
     Dates: start: 20041101
  9. UNKNOWN BLOOD PRESSURE MEDICATION [Concomitant]
     Indication: HYPERTENSION

REACTIONS (7)
  - BREAST CANCER [None]
  - BLOOD CREATININE INCREASED [None]
  - HOT FLUSH [None]
  - DECREASED APPETITE [None]
  - WEIGHT DECREASED [None]
  - NIGHT SWEATS [None]
  - MUSCULAR WEAKNESS [None]
